FAERS Safety Report 7484170-7 (Version None)
Quarter: 2011Q2

REPORT INFORMATION
  Report Type: 
  Country: None (occurrence: None)
  Receive Date: 20110509
  Receipt Date: 20110504
  Transmission Date: 20111010
  Serious: Yes (Hospitalization, Other)
  Sender: FDA-Public Use
  Company Number: CL-310-2011

PATIENT
  Age: 89 Year
  Sex: Male

DRUGS (9)
  1. METOPROLOL TARTRATE [Concomitant]
  2. LANSOPRAZOLE [Concomitant]
  3. SIMBASTATIN [Concomitant]
  4. CIPROFLOXACIN [Suspect]
     Indication: LOWER RESPIRATORY TRACT INFECTION
     Dosage: 500 MG BD, ORAL USE
     Route: 048
     Dates: start: 20110409, end: 20110409
  5. ASPIRIN [Concomitant]
  6. ISOSORBIDE MONONITRATE [Concomitant]
  7. NITROLINGUAL [Concomitant]
  8. ZOLADEX [Concomitant]
  9. DOXYCYCLINE [Concomitant]

REACTIONS (1)
  - SUPRAVENTRICULAR TACHYCARDIA [None]
